FAERS Safety Report 5498719-7 (Version None)
Quarter: 2007Q4

REPORT INFORMATION
  Report Type: 
  Country: None (occurrence: None)
  Receive Date: 20071026
  Receipt Date: 20071005
  Transmission Date: 20080405
  Serious: Yes (Hospitalization)
  Sender: FDA-Public Use
  Company Number: A0662811A

PATIENT
  Age: 63 Year
  Sex: Female

DRUGS (2)
  1. ADVAIR DISKUS 100/50 [Suspect]
     Indication: ASTHMA
     Dosage: 1PUFF TWICE PER DAY
     Route: 055
  2. COMBIVENT [Concomitant]

REACTIONS (4)
  - BRONCHITIS [None]
  - FUNGAL INFECTION [None]
  - PHARMACEUTICAL PRODUCT COMPLAINT [None]
  - STAPHYLOCOCCAL INFECTION [None]
